FAERS Safety Report 19185344 (Version 1)
Quarter: 2021Q2

REPORT INFORMATION
  Report Type: Spontaneous
  Country: US (occurrence: US)
  Receive Date: 20210427
  Receipt Date: 20210427
  Transmission Date: 20210717
  Serious: Yes (Other)
  Sender: FDA-Public Use
  Company Number: None

PATIENT
  Age: 46 Year
  Sex: Female
  Weight: 162.36 kg

DRUGS (1)
  1. ASENAPINE. [Suspect]
     Active Substance: ASENAPINE
     Indication: MANIA
     Route: 060
     Dates: start: 20210203, end: 20210204

REACTIONS (2)
  - Extrapyramidal disorder [None]
  - Gait inability [None]

NARRATIVE: CASE EVENT DATE: 20210203
